FAERS Safety Report 4960658-5 (Version None)
Quarter: 2006Q2

REPORT INFORMATION
  Report Type: 
  Country: None (occurrence: None)
  Receive Date: 20060403
  Receipt Date: 20051122
  Transmission Date: 20061013
  Serious: Yes (Hospitalization)
  Sender: FDA-Public Use
  Company Number: US-MERCK-0511USA03849

PATIENT
  Age: 63 Year
  Sex: Male
  Weight: 100 kg

DRUGS (6)
  1. VIOXX [Suspect]
     Indication: OSTEOARTHRITIS
     Route: 048
     Dates: start: 19990101, end: 20031129
  2. ASPIRIN [Concomitant]
     Route: 065
  3. IBUPROFEN [Concomitant]
     Route: 065
  4. TYLENOL (CAPLET) [Concomitant]
     Route: 065
  5. VITAMINS (UNSPECIFIED) [Concomitant]
     Route: 065
  6. VITAMIN E [Concomitant]
     Route: 065

REACTIONS (5)
  - CEREBRAL INFARCTION [None]
  - CEREBROVASCULAR ACCIDENT [None]
  - COUGH [None]
  - INFARCTION [None]
  - MITRAL VALVE PROLAPSE [None]
